FAERS Safety Report 9264419 (Version 3)
Quarter: 2014Q4

REPORT INFORMATION
  Report Type: Spontaneous
  Country: US (occurrence: US)
  Receive Date: 20130430
  Receipt Date: 20141003
  Transmission Date: 20150529
  Serious: Yes (Hospitalization, Other)
  Sender: FDA-Public Use
  Company Number: US-009507513-1304USA015589

PATIENT
  Sex: Female

DRUGS (1)
  1. NUVARING [Suspect]
     Active Substance: ETHINYL ESTRADIOL\ETONOGESTREL
     Indication: CONTRACEPTION
     Dosage: UNK
     Route: 067
     Dates: start: 20050224, end: 20140415

REACTIONS (10)
  - Deep vein thrombosis [Unknown]
  - Substance abuse [Unknown]
  - Road traffic accident [Unknown]
  - Costochondritis [Unknown]
  - Pain [Unknown]
  - Substance use [Unknown]
  - Pulmonary embolism [Unknown]
  - Rib fracture [Unknown]
  - Migraine [Unknown]
  - Maternal exposure before pregnancy [Unknown]

NARRATIVE: CASE EVENT DATE: 201002
